FAERS Safety Report 9391967 (Version 2)
Quarter: 2013Q3

REPORT INFORMATION
  Report Type: Report from Study
  Country: CZ (occurrence: CZ)
  Receive Date: 20130709
  Receipt Date: 20130823
  Transmission Date: 20140515
  Serious: Yes (Death, Hospitalization)
  Sender: FDA-Public Use
  Company Number: CZ-PFIZER INC-2013198974

PATIENT
  Age: 59 Year
  Sex: Male
  Weight: 110 kg

DRUGS (15)
  1. TOFACITINIB CITRATE [Suspect]
     Indication: RHEUMATOID ARTHRITIS
     Dosage: 5 MG, 2X/DAY
     Route: 048
     Dates: start: 20080630, end: 201305
  2. METHOTREXATE [Concomitant]
     Indication: RHEUMATOID ARTHRITIS
     Dosage: 17.5 MG, WEEKLY
     Route: 048
     Dates: start: 20070917
  3. FOLIC ACID [Concomitant]
     Indication: RHEUMATOID ARTHRITIS
     Dosage: 10 MG, WEEKLY
     Route: 048
     Dates: start: 20050603
  4. PIROXICAM [Concomitant]
     Indication: RHEUMATOID ARTHRITIS
     Dosage: 20 MG, 1X/DAY
     Route: 048
     Dates: start: 20050603
  5. BISOPROLOL [Concomitant]
     Indication: HYPERTENSION
     Dosage: 5 MG, 1X/DAY
     Route: 048
     Dates: start: 2000
  6. AMILORIDE [Concomitant]
     Indication: HYPERTENSION
     Dosage: 1.25 MG, 1X/DAY
     Route: 048
     Dates: start: 20090701
  7. CHLORTALIDONE [Concomitant]
     Indication: HYPERTENSION
     Dosage: 12.5 MG, 1X/DAY
     Route: 048
     Dates: start: 20090701
  8. ROSUVASTATIN [Concomitant]
     Indication: DYSLIPIDAEMIA
     Dosage: 20 MG, 1X/DAY
     Route: 048
     Dates: start: 20130328
  9. METFORMIN [Concomitant]
     Indication: DIABETES MELLITUS
     Dosage: 500 MG, 1X/DAY
     Dates: start: 20130328
  10. INSULIN [Concomitant]
     Indication: DIABETES MELLITUS
     Dosage: 8 IU, 3X/DAY
     Route: 058
     Dates: start: 20130328
  11. ALLOPURINOL [Concomitant]
     Indication: HYPERURICAEMIA
     Dosage: 100 MG, 1X/DAY
     Route: 048
     Dates: start: 20060714
  12. BETAHISTINE [Concomitant]
     Indication: VERTEBROBASILAR INSUFFICIENCY
     Dosage: 8 MG, 1X/DAY
     Route: 048
     Dates: start: 2000
  13. OMEPRAZOL [Concomitant]
     Indication: PROPHYLAXIS
     Dosage: 20 MG, 1X/DAY
     Route: 048
     Dates: start: 200705
  14. ASCORBIC ACID [Concomitant]
     Indication: PROPHYLAXIS
     Dosage: 100 MG, 1X/DAY
     Route: 048
     Dates: start: 20130328
  15. RUTOSIDE [Concomitant]
     Indication: PROPHYLAXIS
     Dosage: 20 MG, 1X/DAY
     Route: 048
     Dates: start: 20130328

REACTIONS (2)
  - Bronchopneumonia [Fatal]
  - Non-Hodgkin^s lymphoma [Not Recovered/Not Resolved]
